FAERS Safety Report 4932896-9 (Version None)
Quarter: 2006Q1

REPORT INFORMATION
  Report Type: 
  Country: None (occurrence: None)
  Receive Date: 20060301
  Receipt Date: 20060220
  Transmission Date: 20060701
  Serious: Yes (Other)
  Sender: FDA-Public Use
  Company Number: 163-21880-06020529

PATIENT
  Age: 90 Year
  Sex: Male
  Weight: 61.6892 kg

DRUGS (1)
  1. REVLIMID [Suspect]
     Indication: MYELODYSPLASTIC SYNDROME
     Dosage: 10 MG, DAILY, ORAL
     Route: 048
     Dates: start: 20060210

REACTIONS (3)
  - BLINDNESS [None]
  - DYSPNOEA [None]
  - FATIGUE [None]
